FAERS Safety Report 9503960 (Version 1)
Quarter: 2013Q1

REPORT INFORMATION
  Report Type: Spontaneous
  Country: US (occurrence: None)
  Receive Date: 20130225
  Receipt Date: 20130225
  Transmission Date: 20140127
  Serious: No
  Sender: FDA-Public Use
  Company Number: 366792

PATIENT
  Age: 78 Year
  Sex: Male

DRUGS (1)
  1. VICTOZA ( LIRAGLUTIDE) SOLUTION FOR INJECTION, 6 MG/ML [Suspect]
     Indication: TYPE 2 DIABETES MELLITUS
     Dosage: 1.2MG BEGAN IN OCT, SUBCUTANEOUS
     Route: 058

REACTIONS (3)
  - Decreased appetite [None]
  - Constipation [None]
  - Diarrhoea [None]
